FAERS Safety Report 7852470-4 (Version None)
Quarter: 2011Q3

REPORT INFORMATION
  Report Type: 
  Country: None (occurrence: None)
  Receive Date: 20110912
  Receipt Date: 20110718
  Transmission Date: 20111222
  Serious: No
  Sender: FDA-Public Use
  Company Number: TH-2011-00265

PATIENT
  Age: 51 Year
  Sex: Female

DRUGS (1)
  1. EGRIFTA [Suspect]
     Indication: LIPODYSTROPHY ACQUIRED
     Dates: start: 20110101, end: 20110701

REACTIONS (3)
  - LIMB DISCOMFORT [None]
  - INSOMNIA [None]
  - PAIN IN EXTREMITY [None]
